FAERS Safety Report 16677867 (Version 1)
Quarter: 2019Q3

REPORT INFORMATION
  Report Type: Spontaneous
  Country: CN (occurrence: CN)
  Receive Date: 20190807
  Receipt Date: 20190807
  Transmission Date: 20191004
  Serious: Yes (Life-Threatening, Other)
  Sender: FDA-Public Use
  Company Number: CN-PFIZER INC-2019327151

PATIENT
  Age: 29 Year
  Sex: Female

DRUGS (4)
  1. MISOPROSTOL. [Suspect]
     Active Substance: MISOPROSTOL
     Indication: LABOUR INDUCTION
     Dosage: 0.6 MG, UNK
     Route: 048
     Dates: start: 20170423
  2. MIFEPRISTONE [Suspect]
     Active Substance: MIFEPRISTONE
     Indication: LABOUR INDUCTION
     Dosage: 50 MG, PER 12H FOR A TOTAL OF 3 DOSES
     Dates: start: 20170421
  3. PETHIDINE [Concomitant]
     Active Substance: MEPERIDINE
     Indication: ANALGESIC THERAPY
     Dosage: UNK
     Dates: start: 20170423
  4. RIVANOL [Suspect]
     Active Substance: ETHACRIDINE LACTATE
     Dosage: 100 MG, UNK
     Route: 012
     Dates: start: 20170423

REACTIONS (2)
  - Uterine rupture [Recovered/Resolved]
  - Shock haemorrhagic [Recovered/Resolved]
